FAERS Safety Report 11828577 (Version 1)
Quarter: 2015Q4

REPORT INFORMATION
  Report Type: Spontaneous
  Country: FR (occurrence: FR)
  Receive Date: 20151211
  Receipt Date: 20151211
  Transmission Date: 20160305
  Serious: Yes (Hospitalization)
  Sender: FDA-Public Use
  Company Number: FR-PFIZER INC-2015428600

PATIENT
  Age: 49 Year
  Sex: Male

DRUGS (8)
  1. SOLU-MEDROL [Suspect]
     Active Substance: METHYLPREDNISOLONE SODIUM SUCCINATE
     Dosage: 60 MG, DAILY
     Route: 042
     Dates: start: 20151016, end: 20151017
  2. ADCETRIS [Suspect]
     Active Substance: BRENTUXIMAB VEDOTIN
     Indication: HODGKIN^S DISEASE
     Dosage: 85 MG, SINGLE
     Route: 042
     Dates: start: 20151016, end: 20151016
  3. POLARAMINE [Suspect]
     Active Substance: DEXCHLORPHENIRAMINE MALEATE
     Indication: PREMEDICATION
     Dosage: 5 MG, DAILY
     Route: 042
     Dates: start: 20151016, end: 20151017
  4. DIFFU K [Concomitant]
     Active Substance: POTASSIUM CHLORIDE
  5. LEVACT [Suspect]
     Active Substance: BENDAMUSTINE HYDROCHLORIDE
     Indication: HODGKIN^S DISEASE
     Dosage: 75 MG, DAILY
     Route: 042
     Dates: start: 20151016, end: 20151017
  6. EMEND [Suspect]
     Active Substance: APREPITANT
     Indication: PROPHYLAXIS OF NAUSEA AND VOMITING
     Dosage: 125 MG, DAILY
     Route: 048
     Dates: start: 20151016, end: 20151017
  7. ATARAX [Concomitant]
     Active Substance: HYDROXYZINE\HYDROXYZINE HYDROCHLORIDE
  8. DOLIPRANE [Suspect]
     Active Substance: ACETAMINOPHEN
     Indication: PREMEDICATION
     Dosage: 1 G, DAILY
     Route: 048
     Dates: start: 20151016, end: 20151017

REACTIONS (1)
  - Hypothermia [Recovering/Resolving]

NARRATIVE: CASE EVENT DATE: 20151017
